FAERS Safety Report 11464445 (Version 1)
Quarter: 2015Q3

REPORT INFORMATION
  Report Type: Spontaneous
  Country: US (occurrence: US)
  Receive Date: 20150831
  Receipt Date: 20150831
  Transmission Date: 20151125
  Serious: No
  Sender: FDA-Public Use
  Company Number: US-ELI_LILLY_AND_COMPANY-US201107002849

PATIENT
  Age: 34 Year
  Sex: Female

DRUGS (1)
  1. CYMBALTA [Suspect]
     Active Substance: DULOXETINE HYDROCHLORIDE
     Indication: DEPRESSION
     Dosage: 60 MG, QD
     Dates: start: 201105, end: 201107

REACTIONS (5)
  - Abdominal discomfort [Unknown]
  - Drug withdrawal syndrome [Unknown]
  - Faeces soft [Unknown]
  - Gastrointestinal pain [Unknown]
  - Headache [Unknown]

NARRATIVE: CASE EVENT DATE: 201107
